FAERS Safety Report 11179242 (Version 1)
Quarter: 2015Q2

REPORT INFORMATION
  Report Type: Spontaneous
  Country: CN (occurrence: CN)
  Receive Date: 20150610
  Receipt Date: 20150610
  Transmission Date: 20150821
  Serious: Yes (Hospitalization, Other)
  Sender: FDA-Public Use
  Company Number: PHHY2015CN067027

PATIENT
  Age: 26 Year
  Sex: Female

DRUGS (2)
  1. CEFUROXIME. [Suspect]
     Active Substance: CEFUROXIME
     Indication: PHARYNGITIS
     Dosage: 3 MG, BID
     Route: 065
  2. BUDESONIDE. [Suspect]
     Active Substance: BUDESONIDE
     Indication: PHARYNGITIS
     Route: 055

REACTIONS (6)
  - Fungal infection [Recovered/Resolved]
  - Condition aggravated [Recovered/Resolved]
  - Mucosal ulceration [Recovered/Resolved]
  - Inflammation [Recovered/Resolved]
  - Dysphonia [Recovered/Resolved]
  - Drug abuse [Unknown]
